FAERS Safety Report 17339386 (Version 1)
Quarter: 2020Q1

REPORT INFORMATION
  Report Type: Spontaneous
  Country: US (occurrence: US)
  Receive Date: 20200129
  Receipt Date: 20200129
  Transmission Date: 20200409
  Serious: Yes (Other)
  Sender: FDA-Public Use
  Company Number: US-PFIZER INC-2020041552

PATIENT
  Age: 50 Year
  Sex: Female

DRUGS (2)
  1. CELEBREX [Suspect]
     Active Substance: CELECOXIB
     Dosage: UNK
  2. BUTORPHANOL [BUTORPHANOL TARTRATE] [Concomitant]
     Dosage: UNK
     Route: 045

REACTIONS (1)
  - Anaphylactic reaction [Unknown]
